FAERS Safety Report 24402530 (Version 1)
Quarter: 2024Q4

REPORT INFORMATION
  Report Type: Spontaneous
  Country: US (occurrence: US)
  Receive Date: 20241007
  Receipt Date: 20241007
  Transmission Date: 20250115
  Serious: Yes (Other)
  Sender: SPECGX
  Company Number: US-SPECGX-T202401986

PATIENT
  Age: 73 Year
  Sex: Male

DRUGS (6)
  1. POSACONAZOLE [Suspect]
     Active Substance: POSACONAZOLE
     Indication: Prophylaxis
     Dosage: UNK
     Route: 065
  2. TACROLIMUS [Suspect]
     Active Substance: TACROLIMUS
     Indication: Immunosuppression
     Dosage: UNK
     Route: 065
  3. BELUMOSUDIL [Suspect]
     Active Substance: BELUMOSUDIL
     Indication: Immunosuppression
     Dosage: UNK
     Route: 065
  4. ACYCLOVIR [Suspect]
     Active Substance: ACYCLOVIR
     Indication: Prophylaxis
     Dosage: UNK
     Route: 065
  5. ATOVAQUONE [Suspect]
     Active Substance: ATOVAQUONE
     Indication: Prophylaxis
     Dosage: UNK
     Route: 065
  6. MOXIFLOXACIN [Suspect]
     Active Substance: MOXIFLOXACIN
     Indication: Pulmonary nocardiosis
     Dosage: UNK
     Route: 048

REACTIONS (2)
  - Pulmonary nocardiosis [Recovering/Resolving]
  - Pulmonary alveolar haemorrhage [Recovering/Resolving]
